FAERS Safety Report 14195408 (Version 1)
Quarter: 2017Q4

REPORT INFORMATION
  Report Type: Spontaneous
  Country: AU (occurrence: AU)
  Receive Date: 20171115
  Receipt Date: 20171115
  Transmission Date: 20180321
  Serious: Yes (Hospitalization, Other)
  Sender: FDA-Public Use
  Company Number: None

PATIENT
  Age: 6 Year
  Sex: Male
  Weight: 22 kg

DRUGS (6)
  1. INTAL FORTE [Concomitant]
  2. ADVANTAN [Suspect]
     Active Substance: METHYLPREDNISOLONE ACEPONATE
     Indication: ECZEMA
     Route: 061
     Dates: end: 20151013
  3. PRO BIOTICS [Concomitant]
  4. ELEUPHRAT [Suspect]
     Active Substance: BETAMETHASONE DIPROPIONATE
  5. VENTALIN [Concomitant]
  6. FISH OIL [Concomitant]
     Active Substance: FISH OIL

REACTIONS (5)
  - Red man syndrome [None]
  - Insomnia [None]
  - Drug dependence [None]
  - Pruritus [None]
  - Drug withdrawal syndrome [None]

NARRATIVE: CASE EVENT DATE: 20150930
